FAERS Safety Report 8553106-X (Version None)
Quarter: 2012Q3

REPORT INFORMATION
  Report Type: 
  Country: None (occurrence: None)
  Receive Date: 20120724
  Receipt Date: 20120724
  Transmission Date: 20120928
  Serious: No
  Sender: FDA-Public Use
  Company Number: None

PATIENT
  Sex: Female
  Weight: 94.8018 kg

DRUGS (1)
  1. LAMISIL [Suspect]
     Indication: ONYCHOMYCOSIS
     Dosage: 250 MG 1 A DAY
     Dates: start: 20120719

REACTIONS (4)
  - NAUSEA [None]
  - ABDOMINAL PAIN UPPER [None]
  - DIARRHOEA [None]
  - ABDOMINAL DISCOMFORT [None]
